FAERS Safety Report 7641132-4 (Version None)
Quarter: 2011Q3

REPORT INFORMATION
  Report Type: 
  Country: None (occurrence: None)
  Receive Date: 20110728
  Receipt Date: 20110715
  Transmission Date: 20111222
  Serious: Yes (Hospitalization, Other)
  Sender: FDA-Public Use
  Company Number: CA-ELI_LILLY_AND_COMPANY-CA201107004209

PATIENT
  Sex: Female

DRUGS (5)
  1. DIVALPROEX SODIUM [Concomitant]
  2. EFFEXOR [Concomitant]
  3. ZYPREXA [Suspect]
     Indication: BIPOLAR DISORDER
     Dosage: 2.5 MG, EACH EVENING
     Dates: start: 20000718, end: 20010319
  4. ZYPREXA [Suspect]
     Dosage: 5 MG, EACH EVENING
  5. DURALITH [Concomitant]

REACTIONS (10)
  - HEPATIC STEATOSIS [None]
  - HYPERGLYCAEMIA [None]
  - APPENDICECTOMY [None]
  - TYPE 2 DIABETES MELLITUS [None]
  - OSTEOPOROSIS [None]
  - CHEST PAIN [None]
  - HYPERCHOLESTEROLAEMIA [None]
  - MYOCARDIAL INFARCTION [None]
  - ELECTROCARDIOGRAM CHANGE [None]
  - CORONARY ARTERY DISEASE [None]
